FAERS Safety Report 8852094 (Version 1)
Quarter: 2012Q4

REPORT INFORMATION
  Report Type: Spontaneous
  Country: GB (occurrence: None)
  Receive Date: 20121017
  Receipt Date: 20121017
  Transmission Date: 20130627
  Serious: Yes (Other)
  Sender: FDA-Public Use
  Company Number: 2012SP02955

PATIENT
  Age: 73 Year
  Sex: Female
  Weight: 76 kg

DRUGS (12)
  1. OXALIPLATIN (OXALIPLATIN) [Suspect]
     Indication: BOWEL CANCER
     Route: 042
  2. CAPECITABINE [Suspect]
     Route: 048
  3. ATENOLOL [Concomitant]
  4. BUCCASTEM [Concomitant]
  5. DEXAMETHASONE [Concomitant]
  6. LANTUS [Concomitant]
  7. LISINOPRIL [Concomitant]
  8. METFORMIN [Concomitant]
  9. METOCLOPRAMIDE [Concomitant]
  10. NOVORAPID [Concomitant]
  11. SIMVASTATIN [Concomitant]
  12. ZOPICLONE [Concomitant]

REACTIONS (4)
  - Pneumonia aspiration [None]
  - Ileus [None]
  - Lactic acidosis [None]
  - Shock [None]
